FAERS Safety Report 25806391 (Version 1)
Quarter: 2025Q3

REPORT INFORMATION
  Report Type: Report from Study
  Country: US (occurrence: US)
  Receive Date: 20250916
  Receipt Date: 20250916
  Transmission Date: 20251020
  Serious: Yes (Other)
  Sender: TAKEDA
  Company Number: US-TAKEDA-2024TUS015566

PATIENT
  Sex: Male
  Weight: 131 kg

DRUGS (3)
  1. FRUQUINTINIB [Suspect]
     Active Substance: FRUQUINTINIB
     Indication: Colon cancer
     Dosage: 5 MILLIGRAM, QD
     Dates: start: 20240201
  2. FRUQUINTINIB [Suspect]
     Active Substance: FRUQUINTINIB
  3. FRUQUINTINIB [Suspect]
     Active Substance: FRUQUINTINIB

REACTIONS (8)
  - Cataract [Unknown]
  - Dry mouth [Unknown]
  - Vein disorder [Unknown]
  - Tooth infection [Unknown]
  - Lethargy [Unknown]
  - Fatigue [Recovering/Resolving]
  - Dysphonia [Unknown]
  - Diarrhoea [Recovered/Resolved]
